FAERS Safety Report 4517628-0 (Version None)
Quarter: 2004Q4

REPORT INFORMATION
  Report Type: 
  Country: None (occurrence: None)
  Receive Date: 20041203
  Receipt Date: 20041119
  Transmission Date: 20050328
  Serious: Yes (Hospitalization)
  Sender: FDA-Public Use
  Company Number: PHBS2004JP15796

PATIENT
  Age: 69 Year
  Sex: Male

DRUGS (5)
  1. NAUZELIN [Concomitant]
  2. RISUMIC [Concomitant]
  3. BIOSMIN [Concomitant]
  4. CEREKINON [Concomitant]
  5. GLEEVEC [Suspect]
     Indication: CHRONIC MYELOID LEUKAEMIA
     Route: 048

REACTIONS (3)
  - SKIN CANCER [None]
  - SKIN NEOPLASM EXCISION [None]
  - SKIN ULCER [None]
